FAERS Safety Report 8723632 (Version 2)
Quarter: 2012Q4

REPORT INFORMATION
  Report Type: 
  Country: US (occurrence: US)
  Receive Date: 20120815
  Receipt Date: 20121003
  Transmission Date: 20130627
  Serious: Yes (Hospitalization)
  Sender: FDA-Public Use
  Company Number: US-BIOGENIDEC-2012BI030410

PATIENT
  Age: 60 Year
  Sex: Female

DRUGS (13)
  1. TYSABRI [Suspect]
     Indication: MULTIPLE SCLEROSIS
     Route: 042
     Dates: start: 20070614, end: 20091204
  2. TYSABRI [Suspect]
     Indication: MULTIPLE SCLEROSIS
     Route: 042
     Dates: start: 20110728
  3. AVONEX [Concomitant]
     Indication: MULTIPLE SCLEROSIS
     Route: 030
  4. AVONEX [Concomitant]
     Indication: MULTIPLE SCLEROSIS
     Route: 030
     Dates: start: 20020531
  5. NAPROXEN [Concomitant]
  6. BACLOFEN [Concomitant]
     Indication: MUSCLE SPASMS
  7. CALCIUM WITH VITAMIN D [Concomitant]
     Indication: HYPOVITAMINOSIS
  8. TOVIAZ [Concomitant]
     Indication: HYPERTONIC BLADDER
  9. CELEXA [Concomitant]
     Indication: DEPRESSION
  10. RESTASIS [Concomitant]
     Indication: DRY EYE
  11. VITAMIN B-12 [Concomitant]
     Indication: HYPOVITAMINOSIS
     Route: 030
  12. BACTRIM DS [Concomitant]
     Indication: URINARY TRACT INFECTION
     Route: 048
  13. KLONOPIN [Concomitant]

REACTIONS (1)
  - Haematuria [Recovered/Resolved]
